FAERS Safety Report 17605142 (Version 1)
Quarter: 2020Q1

REPORT INFORMATION
  Report Type: Spontaneous
  Country: IN (occurrence: IN)
  Receive Date: 20200331
  Receipt Date: 20200331
  Transmission Date: 20200409
  Serious: Yes (Other)
  Sender: FDA-Public Use
  Company Number: IN-MACLEODS PHARMACEUTICALS US LTD-MAC2020025967

PATIENT

DRUGS (1)
  1. LEVOFLOXACIN 500 MG [Suspect]
     Active Substance: LEVOFLOXACIN
     Indication: POSTOPERATIVE CARE
     Dosage: 500 MILLIGRAM, BID
     Route: 048

REACTIONS (1)
  - Mania [Recovered/Resolved]
